FAERS Safety Report 6945675-8 (Version None)
Quarter: 2010Q3

REPORT INFORMATION
  Report Type: 
  Country: None (occurrence: None)
  Receive Date: 20100827
  Receipt Date: 20100819
  Transmission Date: 20110219
  Serious: Yes (Disabling)
  Sender: FDA-Public Use
  Company Number: B0670434A

PATIENT
  Sex: Female

DRUGS (3)
  1. NIQUITIN MINI LOZENGES 1.5MG [Suspect]
     Indication: PRODUCT USED FOR UNKNOWN INDICATION
     Dosage: 1.5MG SEE DOSAGE TEXT
     Route: 002
  2. GABAPENTIN [Concomitant]
     Route: 065
  3. CITALOPRAM [Concomitant]
     Route: 065

REACTIONS (3)
  - ILL-DEFINED DISORDER [None]
  - ORAL PAIN [None]
  - OROPHARYNGEAL BLISTERING [None]
